FAERS Safety Report 8502186-6 (Version None)
Quarter: 2012Q2

REPORT INFORMATION
  Report Type: 
  Country: None (occurrence: None)
  Receive Date: 20120405
  Receipt Date: 20101221
  Transmission Date: 20120825
  Serious: Yes (Other)
  Sender: FDA-Public Use
  Company Number: PHHY2010US63935

PATIENT
  Age: 62 Year
  Sex: Female
  Weight: 45 kg

DRUGS (4)
  1. BISOPROLOL FUMARATE [Concomitant]
  2. VITAMIN D [Concomitant]
  3. ASCORBIC ACID [Concomitant]
  4. RECLAST [Suspect]
     Indication: OSTEOPOROSIS
     Dosage: 5 MG, INTRAVENOUS
     Route: 042
     Dates: start: 20100922, end: 20100922

REACTIONS (8)
  - BLOOD PRESSURE DECREASED [None]
  - NAUSEA [None]
  - PAIN IN EXTREMITY [None]
  - HYPERHIDROSIS [None]
  - OROPHARYNGEAL PAIN [None]
  - FEELING HOT [None]
  - SYNCOPE [None]
  - THIRST [None]
